FAERS Safety Report 13725834 (Version 2)
Quarter: 2017Q3

REPORT INFORMATION
  Report Type: Spontaneous
  Country: US (occurrence: US)
  Receive Date: 20170706
  Receipt Date: 20170714
  Transmission Date: 20171127
  Serious: Yes (Death)
  Sender: FDA-Public Use
  Company Number: US-LUNDBECK-DKLU2033522

PATIENT
  Age: 79 Year
  Sex: Female

DRUGS (5)
  1. NORTHERA [Suspect]
     Active Substance: DROXIDOPA
     Route: 048
     Dates: start: 20160510
  2. NORTHERA [Suspect]
     Active Substance: DROXIDOPA
     Indication: RENAL ARTERY ARTERIOSCLEROSIS
     Route: 048
     Dates: start: 20160908, end: 20170615
  3. NORTHERA [Suspect]
     Active Substance: DROXIDOPA
     Indication: SYNCOPE
     Dosage: FORM STRENGTH 100 MG AND 300 MG?TITRATION COMPLETE
     Route: 048
     Dates: start: 20160801, end: 20170615
  4. NORTHERA [Suspect]
     Active Substance: DROXIDOPA
     Indication: HYPOTENSION
     Route: 048
     Dates: start: 20160510
  5. NORTHERA [Suspect]
     Active Substance: DROXIDOPA
     Indication: ORTHOSTATIC HYPOTENSION
     Route: 048
     Dates: start: 20160908, end: 20170615

REACTIONS (3)
  - Hypertension [Fatal]
  - Dementia [Fatal]
  - Cardiac failure congestive [Fatal]

NARRATIVE: CASE EVENT DATE: 20170615
